FAERS Safety Report 11699267 (Version 1)
Quarter: 2015Q4

REPORT INFORMATION
  Report Type: Spontaneous
  Country: US (occurrence: US)
  Receive Date: 20151104
  Receipt Date: 20151104
  Transmission Date: 20160304
  Serious: No
  Sender: FDA-Public Use
  Company Number: US-AKRIMAX-TIR-2015-0295

PATIENT
  Age: 70 Year
  Sex: Female
  Weight: 52.21 kg

DRUGS (2)
  1. TIROSINT [Suspect]
     Active Substance: LEVOTHYROXINE SODIUM
     Indication: HYPOTHYROIDISM
     Dosage: 100MCG DAILY
     Route: 048
     Dates: start: 201509
  2. TIROSINT [Suspect]
     Active Substance: LEVOTHYROXINE SODIUM
     Indication: HYPOTHYROIDISM
     Dosage: 88MCG DAILY
     Route: 048
     Dates: start: 201502, end: 201509

REACTIONS (8)
  - Thyroid function test abnormal [Unknown]
  - Urticaria [Unknown]
  - Rash generalised [Unknown]
  - Flushing [None]
  - Inflammation [None]
  - Pain [None]
  - Rash pruritic [None]
  - Drug ineffective [None]

NARRATIVE: CASE EVENT DATE: 201509
